FAERS Safety Report 6550754-3 (Version None)
Quarter: 2010Q1

REPORT INFORMATION
  Report Type: 
  Country: None (occurrence: None)
  Receive Date: 20100121
  Receipt Date: 20100106
  Transmission Date: 20100710
  Serious: Yes (Life-Threatening, Hospitalization, Other)
  Sender: FDA-Public Use
  Company Number: AMAG201000005

PATIENT
  Age: 69 Year
  Sex: Male
  Weight: 92.5 kg

DRUGS (11)
  1. FERAHEME [Suspect]
     Indication: IRON DEFICIENCY ANAEMIA
     Dosage: 30-60 MG, SINGLE, INTRAVENOUS
     Route: 042
     Dates: start: 20100106, end: 20100106
  2. FERAHEME [Suspect]
     Indication: RENAL FAILURE CHRONIC
     Dosage: 30-60 MG, SINGLE, INTRAVENOUS
     Route: 042
     Dates: start: 20100106, end: 20100106
  3. COZAAR [Concomitant]
  4. LISINOPRIL (LISINOPRIL DIHYDRATE) [Concomitant]
  5. LIPITOR [Concomitant]
  6. BUMEX [Concomitant]
  7. WARFARIN SODIUM [Concomitant]
  8. INSULIN (INSULIN) [Concomitant]
  9. ZEMPLAR [Concomitant]
  10. OSCAL (CALCIUM CARBONATE) [Concomitant]
  11. ASPIRIN [Concomitant]

REACTIONS (12)
  - AGITATION [None]
  - BLOOD CREATININE INCREASED [None]
  - BLOOD PRESSURE SYSTOLIC INCREASED [None]
  - BLOOD UREA INCREASED [None]
  - CARDIO-RESPIRATORY ARREST [None]
  - COLLAPSE OF LUNG [None]
  - HAEMOGLOBIN DECREASED [None]
  - HEADACHE [None]
  - METABOLIC ACIDOSIS [None]
  - PULMONARY OEDEMA [None]
  - TACHYCARDIA [None]
  - UNRESPONSIVE TO STIMULI [None]
